FAERS Safety Report 22020204 (Version 3)
Quarter: 2023Q2

REPORT INFORMATION
  Report Type: Spontaneous
  Country: US (occurrence: US)
  Receive Date: 20230222
  Receipt Date: 20230602
  Transmission Date: 20230722
  Serious: Yes (Hospitalization, Other)
  Sender: FDA-Public Use
  Company Number: US-BRISTOL-MYERS SQUIBB COMPANY-2023-025742

PATIENT
  Age: 35 Year
  Sex: Male

DRUGS (2)
  1. SOTYKTU [Suspect]
     Active Substance: DEUCRAVACITINIB
     Indication: Psoriasis
     Dosage: ONGOING
     Route: 048
     Dates: start: 20220712
  2. SOTYKTU [Suspect]
     Active Substance: DEUCRAVACITINIB
     Dosage: QD
     Route: 048
     Dates: start: 20221108, end: 20230324

REACTIONS (4)
  - Erythema [Unknown]
  - Pruritus [Unknown]
  - Skin burning sensation [Unknown]
  - Pancreatitis [Recovered/Resolved]
